FAERS Safety Report 6632996-1 (Version None)
Quarter: 2010Q1

REPORT INFORMATION
  Report Type: 
  Country: None (occurrence: None)
  Receive Date: 20100312
  Receipt Date: 20100303
  Transmission Date: 20100710
  Serious: Yes (Hospitalization)
  Sender: FDA-Public Use
  Company Number: CA-GENZYME-MOZO-1000312

PATIENT
  Sex: Male
  Weight: 59.2 kg

DRUGS (8)
  1. MOZOBIL [Suspect]
     Indication: HAEMATOPOIETIC STEM CELL MOBILISATION
     Dosage: 14 MG, ONCE
     Route: 065
     Dates: start: 20100207, end: 20100207
  2. MOZOBIL [Suspect]
     Indication: MULTIPLE MYELOMA
  3. VELCADE [Concomitant]
     Indication: MULTIPLE MYELOMA
     Dosage: 1.3 MG/M2, UNK
     Route: 065
  4. DEXAMETHASONE [Concomitant]
     Indication: MULTIPLE MYELOMA
     Dosage: 20 MG, UNK
     Route: 048
  5. FENTANYL [Concomitant]
     Indication: PAIN
     Dosage: 175 MCG, 3X/Q72HR
     Route: 062
     Dates: start: 20091101
  6. HYDROMORPHONE HCL [Concomitant]
     Indication: PAIN
     Dosage: 12 MG, PRN
     Route: 065
     Dates: start: 20091101
  7. NEUPOGEN [Concomitant]
     Indication: HAEMATOPOIETIC STEM CELL MOBILISATION
     Dosage: 960 MCG, QD
     Route: 058
  8. PAMIDRONATE DISODIUM [Concomitant]
     Indication: OSTEOLYSIS
     Dosage: 90 MG, UNK
     Route: 042

REACTIONS (3)
  - CONFUSIONAL STATE [None]
  - CONVULSION [None]
  - SCAPULA FRACTURE [None]
